FAERS Safety Report 18125953 (Version 3)
Quarter: 2020Q3

REPORT INFORMATION
  Report Type: Spontaneous
  Country: US (occurrence: US)
  Receive Date: 20200808
  Receipt Date: 20200921
  Transmission Date: 20201103
  Serious: Yes (Other)
  Sender: FDA-Public Use
  Company Number: US-AUROBINDO-AUR-APL-2020-037980

PATIENT
  Age: 29 Year
  Sex: Female
  Weight: 81.65 kg

DRUGS (1)
  1. VENLAFAXINE HYDROCHLORIDE EXTENDED?RELEASE CAPSULES 150MG [Suspect]
     Active Substance: VENLAFAXINE HYDROCHLORIDE
     Indication: ANXIETY
     Dosage: 2 DOSAGE FORM, ONCE A DAY
     Route: 048

REACTIONS (3)
  - Product use complaint [Unknown]
  - Foreign body in throat [Not Recovered/Not Resolved]
  - Product size issue [Unknown]

NARRATIVE: CASE EVENT DATE: 2015
